FAERS Safety Report 17789133 (Version 7)
Quarter: 2021Q1

REPORT INFORMATION
  Report Type: Report from Study
  Country: US (occurrence: US)
  Receive Date: 20200514
  Receipt Date: 20210311
  Transmission Date: 20210419
  Serious: Yes (Other)
  Sender: FDA-Public Use
  Company Number: NVSC2020US131983

PATIENT
  Age: 76 Year
  Sex: Male

DRUGS (2)
  1. ENTRESTO [Suspect]
     Active Substance: SACUBITRIL\VALSARTAN
     Dosage: UNK
     Route: 048
     Dates: start: 20200513, end: 20200724
  2. ENTRESTO [Suspect]
     Active Substance: SACUBITRIL\VALSARTAN
     Indication: CARDIAC FAILURE
     Dosage: UNK
     Route: 048
     Dates: start: 201909

REACTIONS (6)
  - Neoplasm malignant [Unknown]
  - Pain [Unknown]
  - Bladder cancer [Recovering/Resolving]
  - Illness [Unknown]
  - Heart rate irregular [Unknown]
  - Immune system disorder [Unknown]

NARRATIVE: CASE EVENT DATE: 202005
